FAERS Safety Report 9821226 (Version 1)
Quarter: 2013Q4

REPORT INFORMATION
  Report Type: Spontaneous
  Country: US (occurrence: None)
  Receive Date: 20131028
  Receipt Date: 20131028
  Transmission Date: 20140711
  Serious: Yes (Other)
  Sender: FDA-Public Use
  Company Number: 2013US001274

PATIENT
  Age: 59 Year
  Sex: Male
  Weight: 71.2 kg

DRUGS (6)
  1. ICLUSIG [Suspect]
     Indication: CHRONIC MYELOID LEUKAEMIA
     Route: 048
     Dates: start: 20130306
  2. METFORMIN (METFORMIN) [Concomitant]
  3. SIMVASTATN (SIMVASTATIN) [Concomitant]
  4. LISINOPRIL (LISINOPRIL) [Concomitant]
  5. NOVOLOG MIX (INSULIN ASPART, INSULIN ASPART PROTAMINE) [Concomitant]
  6. ASA (ASA) [Concomitant]

REACTIONS (2)
  - Constipation [None]
  - Abdominal pain upper [None]
